FAERS Safety Report 8122074-7 (Version None)
Quarter: 2012Q1

REPORT INFORMATION
  Report Type: 
  Country: None (occurrence: None)
  Receive Date: 20120206
  Receipt Date: 20120123
  Transmission Date: 20120608
  Serious: Yes (Death, Life-Threatening, Hospitalization, Other)
  Sender: FDA-Public Use
  Company Number: 2012MA001016

PATIENT
  Sex: Female
  Weight: 44.4525 kg

DRUGS (18)
  1. DEMADEX [Concomitant]
  2. ZOLOFT [Concomitant]
  3. CRESTOR [Concomitant]
  4. COUMADIN [Concomitant]
  5. COLACE [Concomitant]
  6. DIGOXIN [Suspect]
     Indication: PRODUCT USED FOR UNKNOWN INDICATION
     Dosage: 0.125 MG;QD;PO
     Route: 048
     Dates: start: 20070122, end: 20080111
  7. PREVACID [Concomitant]
  8. LOVENOX [Concomitant]
  9. ASMANEX TWISTHALER [Concomitant]
  10. ACCUPRIL [Concomitant]
  11. ANALPRAM [Concomitant]
  12. POTASSIUM CHLORIDE [Concomitant]
  13. ALDACTONE [Concomitant]
  14. XANAX [Concomitant]
  15. FLONASE [Concomitant]
  16. SYNTHROID [Concomitant]
  17. AVELOX [Concomitant]
  18. COREG [Concomitant]

REACTIONS (54)
  - FAMILY STRESS [None]
  - LIVER FUNCTION TEST ABNORMAL [None]
  - CORONARY ARTERY DISEASE [None]
  - ANAEMIA [None]
  - ISCHAEMIC CARDIOMYOPATHY [None]
  - DEPRESSION [None]
  - CONSTIPATION [None]
  - HEPATIC CONGESTION [None]
  - HYPERTENSION [None]
  - MYOCARDIAL ISCHAEMIA [None]
  - DISORIENTATION [None]
  - DISTURBANCE IN ATTENTION [None]
  - MITRAL VALVE INCOMPETENCE [None]
  - AORTIC VALVE INCOMPETENCE [None]
  - ATRIAL FIBRILLATION [None]
  - CONFUSIONAL STATE [None]
  - CYANOSIS [None]
  - ACTIVITIES OF DAILY LIVING IMPAIRED [None]
  - ANXIETY [None]
  - EMOTIONAL DISORDER [None]
  - DYSPNOEA [None]
  - CARDIAC FAILURE CONGESTIVE [None]
  - SPEECH DISORDER [None]
  - TRICUSPID VALVE INCOMPETENCE [None]
  - MULTIPLE INJURIES [None]
  - ANHEDONIA [None]
  - ASTHENIA [None]
  - HEPATOMEGALY [None]
  - CONJUNCTIVAL PALLOR [None]
  - HYPOXIA [None]
  - HALLUCINATION, AUDITORY [None]
  - PULMONARY EMBOLISM [None]
  - SHOCK [None]
  - RENAL FAILURE [None]
  - RESPIRATORY ARREST [None]
  - PAIN [None]
  - PROCTALGIA [None]
  - PRODUCTIVE COUGH [None]
  - URINARY TRACT INFECTION [None]
  - ACUTE RESPIRATORY FAILURE [None]
  - ECONOMIC PROBLEM [None]
  - DIVERTICULITIS [None]
  - CHRONIC OBSTRUCTIVE PULMONARY DISEASE [None]
  - HALLUCINATION, TACTILE [None]
  - FATIGUE [None]
  - DELIRIUM [None]
  - SYNCOPE [None]
  - CONDITION AGGRAVATED [None]
  - JUDGEMENT IMPAIRED [None]
  - MEMORY IMPAIRMENT [None]
  - BUNDLE BRANCH BLOCK LEFT [None]
  - TOXICITY TO VARIOUS AGENTS [None]
  - MOBILITY DECREASED [None]
  - DEHYDRATION [None]
